FAERS Safety Report 6499989-9 (Version None)
Quarter: 2009Q4

REPORT INFORMATION
  Report Type: 
  Country: None (occurrence: None)
  Receive Date: 20091216
  Receipt Date: 20091109
  Transmission Date: 20100525
  Serious: No
  Sender: FDA-Public Use
  Company Number: A0809072A

PATIENT
  Age: 62 Year
  Sex: Female

DRUGS (2)
  1. LAMICTAL XR [Suspect]
     Indication: EPILEPSY
     Dosage: 100MG PER DAY
     Route: 048
     Dates: start: 20090906, end: 20090914
  2. TRILEPTAL [Concomitant]
     Route: 048

REACTIONS (4)
  - DRUG ERUPTION [None]
  - OEDEMA PERIPHERAL [None]
  - RASH [None]
  - RASH GENERALISED [None]
